FAERS Safety Report 9127365 (Version 1)
Quarter: 2013Q1

REPORT INFORMATION
  Report Type: Report from Study
  Country: US (occurrence: US)
  Receive Date: 20130122
  Receipt Date: 20130122
  Transmission Date: 20140127
  Serious: No
  Sender: FDA-Public Use
  Company Number: US-VERTEX PHARMACEUTICALS INC.-2013-000892

PATIENT
  Age: 58 Year
  Sex: Female
  Weight: 87 kg

DRUGS (8)
  1. VX-950 (TELAPREVIR) [Suspect]
     Indication: HEPATITIS C
     Dosage: 750 MG, TID
     Route: 048
  2. PEGASYS [Suspect]
     Indication: HEPATITIS C
  3. RIBAPAK [Suspect]
     Indication: HEPATITIS C
     Dosage: 1200 MG, QD
  4. CENTRUM                            /02217401/ [Concomitant]
  5. LISINOPRIL [Concomitant]
     Dosage: 10 MG, UNK
  6. ADVIL                              /00044201/ [Concomitant]
     Dosage: 200 MG, UNK
  7. FISH OIL [Concomitant]
  8. HYDROCORTISONE                     /00028602/ [Concomitant]
     Dosage: 2.5 %, UNK

REACTIONS (3)
  - Weight increased [Unknown]
  - Headache [Unknown]
  - Rash [Unknown]
